FAERS Safety Report 23961731 (Version 1)
Quarter: 2024Q2

REPORT INFORMATION
  Report Type: Spontaneous
  Country: US (occurrence: US)
  Receive Date: 20240611
  Receipt Date: 20240611
  Transmission Date: 20240717
  Serious: No
  Sender: FDA-Public Use
  Company Number: US-PFIZER INC-202400188081

PATIENT
  Age: 2 Year
  Sex: Male
  Weight: 11.8 kg

DRUGS (1)
  1. GENOTROPIN [Suspect]
     Active Substance: SOMATROPIN
     Indication: Prader-Willi syndrome
     Dosage: 0.6 MG, 1X/DAY
     Dates: start: 202311

REACTIONS (2)
  - Drug dose omission by device [Unknown]
  - Device breakage [Unknown]
